FAERS Safety Report 9222858 (Version 2)
Quarter: 2013Q2

REPORT INFORMATION
  Report Type: Spontaneous
  Country: CO (occurrence: CO)
  Receive Date: 20130410
  Receipt Date: 20130521
  Transmission Date: 20140414
  Serious: Yes (Other)
  Sender: FDA-Public Use
  Company Number: CO-PFIZER INC-2013111377

PATIENT
  Age: 3 Year
  Sex: Male

DRUGS (3)
  1. GENOTROPIN [Suspect]
     Indication: BODY HEIGHT BELOW NORMAL
     Dosage: 0.6 MG, 1X/DAY
     Route: 058
     Dates: start: 20130319, end: 20130404
  2. GENOTROPIN [Suspect]
     Indication: SILVER-RUSSELL SYNDROME
  3. GENOTROPIN [Suspect]
     Indication: UNDERWEIGHT

REACTIONS (4)
  - Tonsillitis [Recovering/Resolving]
  - Pyrexia [Recovered/Resolved]
  - Nasal congestion [Not Recovered/Not Resolved]
  - Off label use [Unknown]
